FAERS Safety Report 12832147 (Version 1)
Quarter: 2016Q4

REPORT INFORMATION
  Report Type: Spontaneous
  Country: IT (occurrence: IT)
  Receive Date: 20161010
  Receipt Date: 20161010
  Transmission Date: 20170207
  Serious: Yes (Other)
  Sender: FDA-Public Use
  Company Number: IT-TEVA-697921ACC

PATIENT

DRUGS (5)
  1. ROPIVACAINE [Suspect]
     Active Substance: ROPIVACAINE
     Route: 008
  2. FENTANYL. [Suspect]
     Active Substance: FENTANYL
  3. ATRACURIUM [Suspect]
     Active Substance: ATRACURIUM
  4. PROPOFOL. [Suspect]
     Active Substance: PROPOFOL
  5. VECURONIUM [Suspect]
     Active Substance: VECURONIUM BROMIDE

REACTIONS (2)
  - Cardiac arrest [Unknown]
  - Bradyarrhythmia [Unknown]
